FAERS Safety Report 10308802 (Version 4)
Quarter: 2014Q3

REPORT INFORMATION
  Report Type: Spontaneous
  Country: GB (occurrence: None)
  Receive Date: 20140714
  Receipt Date: 20140725
  Transmission Date: 20150326
  Serious: Yes (Other)
  Sender: FDA-Public Use
  Company Number: AUR-APL-2014-07272

PATIENT
  Age: 43 Year
  Sex: Male

DRUGS (6)
  1. CODEINE [Suspect]
     Active Substance: CODEINE
     Indication: PAIN
  2. PARACETAMOL (PARACETAMOL) [Concomitant]
     Active Substance: ACETAMINOPHEN
  3. LYRICA [Suspect]
     Active Substance: PREGABALIN
     Indication: PAIN
     Dates: start: 201211
  4. COCODAMOL [Suspect]
     Active Substance: ACETAMINOPHEN\CODEINE PHOSPHATE
     Indication: PRODUCT USED FOR UNKNOWN INDICATION
  5. TRAMADOL [Suspect]
     Active Substance: TRAMADOL
     Indication: PAIN
  6. LYRICA [Suspect]
     Active Substance: PREGABALIN
     Indication: ANXIETY
     Dates: start: 201211

REACTIONS (34)
  - Mania [None]
  - Hyperhidrosis [None]
  - Disinhibition [None]
  - Memory impairment [None]
  - Malaise [None]
  - Condition aggravated [None]
  - Disturbance in attention [None]
  - Nervousness [None]
  - Myalgia [None]
  - Fatigue [None]
  - Anxiety [None]
  - Drug dose omission [None]
  - Drug ineffective [None]
  - Influenza like illness [None]
  - Drug withdrawal syndrome [None]
  - Insomnia [None]
  - Gait disturbance [None]
  - Bipolar I disorder [None]
  - Musculoskeletal pain [None]
  - Disease progression [None]
  - Chest pain [None]
  - Drug dependence [None]
  - Depression [None]
  - Stress [None]
  - Confusional state [None]
  - Euphoric mood [None]
  - Feeling abnormal [None]
  - Intentional overdose [None]
  - Asthenia [None]
  - Activities of daily living impaired [None]
  - Suicide attempt [None]
  - Somnolence [None]
  - Pain [None]
  - Refusal of treatment by patient [None]

NARRATIVE: CASE EVENT DATE: 20140701
